FAERS Safety Report 13908014 (Version 1)
Quarter: 2017Q3

REPORT INFORMATION
  Report Type: Spontaneous
  Country: US (occurrence: US)
  Receive Date: 20170825
  Receipt Date: 20170825
  Transmission Date: 20171127
  Serious: No
  Sender: FDA-Public Use
  Company Number: US-ROCHE-1117063

PATIENT
  Sex: Male

DRUGS (2)
  1. NUTROPIN [Suspect]
     Active Substance: SOMATROPIN
     Indication: BODY HEIGHT BELOW NORMAL
  2. NUTROPIN [Suspect]
     Active Substance: SOMATROPIN
     Indication: CYSTIC FIBROSIS
     Route: 065

REACTIONS (2)
  - Growth retardation [Unknown]
  - Insulin-like growth factor decreased [Unknown]
